FAERS Safety Report 17594368 (Version 1)
Quarter: 2020Q1

REPORT INFORMATION
  Report Type: Report from Study
  Country: IE (occurrence: IE)
  Receive Date: 20200327
  Receipt Date: 20200327
  Transmission Date: 20200409
  Serious: Yes (Death)
  Sender: FDA-Public Use
  Company Number: IE-ACTELION-A-NJ2020-203670

PATIENT
  Age: 65 Year
  Sex: Male

DRUGS (1)
  1. VENTAVIS [Suspect]
     Active Substance: ILOPROST
     Indication: PULMONARY ARTERIAL HYPERTENSION
     Dosage: 10 MCG/ML, 6ID
     Route: 055
     Dates: start: 20150318, end: 20200308

REACTIONS (1)
  - Death [Fatal]

NARRATIVE: CASE EVENT DATE: 20200308
